FAERS Safety Report 18490940 (Version 2)
Quarter: 2020Q4

REPORT INFORMATION
  Report Type: Spontaneous
  Country: BE (occurrence: BE)
  Receive Date: 20201111
  Receipt Date: 20201222
  Transmission Date: 20210114
  Serious: Yes (Hospitalization, Other)
  Sender: FDA-Public Use
  Company Number: BE-BAYER-2020-237475

PATIENT
  Age: 39 Year
  Sex: Female
  Weight: 58 kg

DRUGS (1)
  1. MIRENA [Suspect]
     Active Substance: LEVONORGESTREL
     Indication: CONTRACEPTION
     Dosage: 20 ?G PER DAY CONTINUOUSLY
     Route: 015
     Dates: start: 20200902, end: 20201021

REACTIONS (3)
  - Uterine perforation [Recovering/Resolving]
  - Device dislocation [Recovering/Resolving]
  - Paroxysmal extreme pain disorder [Recovering/Resolving]

NARRATIVE: CASE EVENT DATE: 20200930
